FAERS Safety Report 19410158 (Version 3)
Quarter: 2021Q3

REPORT INFORMATION
  Report Type: Report from Study
  Country: None (occurrence: US)
  Receive Date: 20210614
  Receipt Date: 20210812
  Transmission Date: 20211014
  Serious: Yes (Hospitalization)
  Sender: FDA-Public Use
  Company Number: US-ABBVIE-20K-163-3609421-00

PATIENT
  Age: 73 Year
  Sex: Male

DRUGS (15)
  1. IMBRUVICA [Suspect]
     Active Substance: IBRUTINIB
     Route: 048
     Dates: start: 201501
  2. IMBRUVICA [Suspect]
     Active Substance: IBRUTINIB
     Route: 048
     Dates: start: 20150128
  3. IMBRUVICA [Suspect]
     Active Substance: IBRUTINIB
     Route: 048
  4. IMBRUVICA [Suspect]
     Active Substance: IBRUTINIB
     Indication: CHRONIC LYMPHOCYTIC LEUKAEMIA (IN REMISSION)
     Route: 048
     Dates: start: 201804
  5. VENCLEXTA [Suspect]
     Active Substance: VENETOCLAX
     Route: 048
     Dates: start: 20210416
  6. IMBRUVICA [Suspect]
     Active Substance: IBRUTINIB
     Route: 048
     Dates: start: 20180411, end: 20210419
  7. VENCLEXTA [Suspect]
     Active Substance: VENETOCLAX
     Dosage: REDUCED DOSE OF 200 MG
     Route: 048
     Dates: start: 20210416
  8. BUMETANIDE. [Concomitant]
     Active Substance: BUMETANIDE
     Indication: DIURETIC THERAPY
  9. IMBRUVICA [Suspect]
     Active Substance: IBRUTINIB
     Indication: CHRONIC LYMPHOCYTIC LEUKAEMIA
     Route: 048
  10. VENCLEXTA [Suspect]
     Active Substance: VENETOCLAX
     Route: 048
  11. VENCLEXTA [Suspect]
     Active Substance: VENETOCLAX
     Dosage: DOSE REDUCED OF 200 MG
     Route: 048
     Dates: end: 20210524
  12. IMBRUVICA [Suspect]
     Active Substance: IBRUTINIB
     Indication: CHRONIC LYMPHOCYTIC LEUKAEMIA
     Route: 048
     Dates: start: 20150122
  13. VENCLEXTA [Suspect]
     Active Substance: VENETOCLAX
     Indication: CHRONIC LYMPHOCYTIC LEUKAEMIA (IN REMISSION)
     Route: 048
     Dates: start: 20210419
  14. VENCLEXTA [Suspect]
     Active Substance: VENETOCLAX
     Route: 048
     Dates: start: 20210419
  15. COVID?19 VACCINE [Concomitant]
     Indication: PRODUCT USED FOR UNKNOWN INDICATION

REACTIONS (32)
  - Mobility decreased [Unknown]
  - Glycosylated haemoglobin increased [Unknown]
  - Oedema peripheral [Unknown]
  - Therapeutic product effect decreased [Unknown]
  - Blood glucose increased [Unknown]
  - Rhinorrhoea [Not Recovered/Not Resolved]
  - Sinus disorder [Not Recovered/Not Resolved]
  - Skin abrasion [Unknown]
  - Anxiety [Unknown]
  - Cough [Not Recovered/Not Resolved]
  - White blood cell count decreased [Recovered/Resolved]
  - White blood cell count increased [Not Recovered/Not Resolved]
  - Blood count abnormal [Unknown]
  - Nasopharyngitis [Not Recovered/Not Resolved]
  - Neuropathy peripheral [Not Recovered/Not Resolved]
  - Tumour lysis syndrome [Unknown]
  - Skin discolouration [Unknown]
  - Heart rate increased [Unknown]
  - Sleep apnoea syndrome [Recovering/Resolving]
  - Gout [Unknown]
  - Blood magnesium decreased [Not Recovered/Not Resolved]
  - Temporomandibular joint syndrome [Unknown]
  - Platelet count decreased [Unknown]
  - Headache [Unknown]
  - Memory impairment [Unknown]
  - Gastrointestinal pain [Unknown]
  - Weight increased [Recovering/Resolving]
  - Fatigue [Recovering/Resolving]
  - Muscle spasms [Recovering/Resolving]
  - Dyspnoea [Unknown]
  - Red blood cell count decreased [Recovered/Resolved]
  - Haemoglobin decreased [Recovered/Resolved]

NARRATIVE: CASE EVENT DATE: 2021
